FAERS Safety Report 25766934 (Version 1)
Quarter: 2025Q3

REPORT INFORMATION
  Report Type: Spontaneous
  Country: US (occurrence: US)
  Receive Date: 20250905
  Receipt Date: 20250905
  Transmission Date: 20251020
  Serious: Yes (Other)
  Sender: PFIZER
  Company Number: US-PFIZER INC-202500174347

PATIENT
  Age: 44 Year
  Sex: Male

DRUGS (1)
  1. NURTEC ODT [Suspect]
     Active Substance: RIMEGEPANT SULFATE
     Indication: Migraine

REACTIONS (3)
  - Cholecystectomy [Unknown]
  - Therapeutic product effect decreased [Unknown]
  - Migraine [Unknown]

NARRATIVE: CASE EVENT DATE: 20250101
